FAERS Safety Report 7958102-9 (Version None)
Quarter: 2011Q4

REPORT INFORMATION
  Report Type: 
  Country: None (occurrence: None)
  Receive Date: 20111130
  Receipt Date: 20111121
  Transmission Date: 20120403
  Serious: Yes (Hospitalization)
  Sender: FDA-Public Use
  Company Number: 1118084

PATIENT
  Age: 11 Year
  Sex: Female

DRUGS (2)
  1. CEFTRIAXONE SODIUM [Suspect]
     Indication: LYME DISEASE
     Dosage: INTRAVENOUS DRIP
     Route: 041
  2. CEFTRIAXONE SODIUM [Suspect]
     Indication: ARTHRITIS
     Dosage: INTRAVENOUS DRIP
     Route: 041

REACTIONS (6)
  - INTRAVASCULAR HAEMOLYSIS [None]
  - TACHYCARDIA [None]
  - RENAL TUBULAR NECROSIS [None]
  - HAEMOLYTIC ANAEMIA [None]
  - RENAL FAILURE [None]
  - DIALYSIS [None]
